FAERS Safety Report 4394740-0 (Version None)
Quarter: 2004Q3

REPORT INFORMATION
  Report Type: 
  Country: None (occurrence: None)
  Receive Date: 20040706
  Receipt Date: 20040629
  Transmission Date: 20050211
  Serious: Yes (Other)
  Sender: FDA-Public Use
  Company Number: WAES 0406USA02735

PATIENT
  Age: 76 Year
  Sex: Female

DRUGS (4)
  1. FOSAMAX [Suspect]
     Indication: OSTEOPOROSIS
     Dosage: 5 MG/DAILY PO
     Route: 048
     Dates: start: 20030911, end: 20040114
  2. LOXONIN [Concomitant]
  3. OPALMON [Concomitant]
  4. SELBEX [Concomitant]

REACTIONS (1)
  - LARGE INTESTINE CARCINOMA [None]
